FAERS Safety Report 18981969 (Version 1)
Quarter: 2021Q1

REPORT INFORMATION
  Report Type: Spontaneous
  Country: US (occurrence: US)
  Receive Date: 20210308
  Receipt Date: 20210308
  Transmission Date: 20210420
  Serious: No
  Sender: FDA-Public Use
  Company Number: US-PFIZER INC-2021167842

PATIENT
  Age: 75 Year
  Sex: Female

DRUGS (3)
  1. ESTROGENS CONJUGATED [Suspect]
     Active Substance: ESTROGENS, CONJUGATED
     Dosage: UNK (.08 )
  2. CELEBREX [Concomitant]
     Active Substance: CELECOXIB
  3. ESTROGENS CONJUGATED [Suspect]
     Active Substance: ESTROGENS, CONJUGATED
     Dosage: UNK (1.25 )

REACTIONS (1)
  - Migraine [Unknown]
